FAERS Safety Report 15273905 (Version 1)
Quarter: 2018Q3

REPORT INFORMATION
  Report Type: Spontaneous
  Country: BR (occurrence: BR)
  Receive Date: 20180814
  Receipt Date: 20180814
  Transmission Date: 20181010
  Serious: Yes (Other)
  Sender: FDA-Public Use
  Company Number: BR-AMGEN-BRASP2018110727

PATIENT
  Age: 71 Year
  Sex: Female

DRUGS (1)
  1. ENBREL [Suspect]
     Active Substance: ETANERCEPT
     Indication: RHEUMATOID ARTHRITIS
     Dosage: UNK
     Route: 065
     Dates: start: 20180101

REACTIONS (8)
  - Feeling abnormal [Unknown]
  - Arthralgia [Unknown]
  - Myalgia [Unknown]
  - Pain [Unknown]
  - Fibromyalgia [Unknown]
  - Neuralgia [Unknown]
  - Gait disturbance [Recovering/Resolving]
  - Dysstasia [Recovering/Resolving]
